FAERS Safety Report 19570529 (Version 2)
Quarter: 2021Q3

REPORT INFORMATION
  Report Type: Spontaneous
  Country: US (occurrence: US)
  Receive Date: 20210715
  Receipt Date: 20210728
  Transmission Date: 20211014
  Serious: Yes (Death, Hospitalization)
  Sender: FDA-Public Use
  Company Number: US-TEVA-2021-US-1931364

PATIENT
  Age: 56 Year
  Sex: Female

DRUGS (2)
  1. PREDNISONE. [Suspect]
     Active Substance: PREDNISONE
     Indication: IMMUNOSUPPRESSANT DRUG THERAPY
     Route: 065
  2. TACROLIMUS. [Suspect]
     Active Substance: TACROLIMUS
     Indication: IMMUNOSUPPRESSANT DRUG THERAPY
     Route: 065

REACTIONS (8)
  - Respiratory failure [Fatal]
  - Subarachnoid haemorrhage [Fatal]
  - Exophthalmos [Unknown]
  - Aneurysm ruptured [Fatal]
  - Histoplasmosis disseminated [Fatal]
  - Panophthalmitis [Unknown]
  - Infective aneurysm [Fatal]
  - Disseminated intravascular coagulation [Fatal]
